FAERS Safety Report 9826829 (Version 1)
Quarter: 2014Q1

REPORT INFORMATION
  Report Type: Spontaneous
  Country: US (occurrence: None)
  Receive Date: 20140115
  Receipt Date: 20140115
  Transmission Date: 20141002
  Serious: Yes (Death, Hospitalization)
  Sender: FDA-Public Use
  Company Number: FK201400070

PATIENT
  Age: 71 Year
  Sex: Male

DRUGS (14)
  1. MORPHINE (MANUFACTURER UNKNOWN) (MORPHINE) (MORPHINE) [Suspect]
     Indication: PRODUCT USED FOR UNKNOWN INDICATION
  2. BLINDED TAS-1021 (TAS 102 /08231601/) [Suspect]
     Indication: COLORECTAL CANCER METASTATIC
     Dosage: 2 IN 1 D
     Route: 048
     Dates: start: 20130530, end: 20130610
  3. BLINDED TAS-1021 (TAS 102 /08231601/) [Suspect]
     Indication: COLORECTAL CANCER METASTATIC
     Dosage: 2 IN 1 D
     Route: 048
     Dates: start: 20130530, end: 20130610
  4. COLACE [Suspect]
     Indication: CONSTIPATION
     Dates: start: 20130514, end: 20130707
  5. LORAZEPAM (LORAZEPAM) [Suspect]
     Indication: ANXIETY
     Dates: start: 20130506, end: 20130707
  6. ONDANSETRON HYDROCHLORIDE (ONDANSETRON HYDROCHLORIDE) [Suspect]
     Indication: PROPHYLAXIS OF NAUSEA AND VOMITING
     Dates: start: 20111025, end: 20130707
  7. OXYCODONE (OXYCODONE) [Suspect]
     Indication: PAIN PROPHYLAXIS
     Dates: start: 20111020, end: 20130707
  8. VITAMIN B COMPLEX (VITAMIN B COMPLEX) [Suspect]
     Indication: VITAMIN SUPPLEMENTATION
     Dosage: AS REQUIRED
     Dates: start: 20130514, end: 20130707
  9. VITAMIN B12 (CYANOCOBALAMIN) [Suspect]
     Indication: VITAMIN SUPPLEMENTATION
     Dosage: AS REQUIRED
     Dates: start: 20111025, end: 20130707
  10. PAROXETINE (PAROXETINE) [Suspect]
     Indication: DEPRESSION
     Dates: start: 20111025, end: 20130707
  11. METOPROLOL XL (METOPROLOL) [Suspect]
     Indication: HYPERTENSION
     Dates: start: 20110823, end: 20130707
  12. DIPHENOXYLATE WITH ATROPINE SULFATE (DIPENOXLATE WATROPINE SULFATE) [Suspect]
     Indication: DIARRHOEA
     Dosage: AS REQUIRED
     Dates: start: 20111212, end: 20130707
  13. LOVENOX (ENOXAPARIN SODIUM) [Suspect]
     Indication: PRODUCT USED FOR UNKNOWN INDICATION
  14. WARFARIN (WARFARIN) [Concomitant]

REACTIONS (6)
  - Haemorrhage intracranial [None]
  - Renal failure [None]
  - Acidosis [None]
  - Cardio-respiratory arrest [None]
  - Arthralgia [None]
  - Bone pain [None]
